FAERS Safety Report 14964698 (Version 1)
Quarter: 2018Q2

REPORT INFORMATION
  Report Type: Spontaneous
  Country: US (occurrence: US)
  Receive Date: 20180601
  Receipt Date: 20180601
  Transmission Date: 20180711
  Serious: Yes (Hospitalization, Other)
  Sender: FDA-Public Use
  Company Number: US-GE HEALTHCARE LIFE SCIENCES-2018CSU002032

PATIENT
  Age: 5 Year
  Sex: Male

DRUGS (1)
  1. GADOLINIUM (UNSPECIFIED) [Suspect]
     Active Substance: GADOLINIUM
     Indication: ASTROCYTOMA, LOW GRADE
     Dosage: UNK UNK, SINGLE
     Route: 065

REACTIONS (2)
  - Extravasation [Unknown]
  - Hydrocephalus [Unknown]
